FAERS Safety Report 5102767-6 (Version None)
Quarter: 2006Q3

REPORT INFORMATION
  Report Type: 
  Country: None (occurrence: None)
  Receive Date: 20060907
  Receipt Date: 20060825
  Transmission Date: 20061208
  Serious: Yes (Death)
  Sender: FDA-Public Use
  Company Number: 229282

PATIENT
  Age: 66 Year
  Sex: Male

DRUGS (1)
  1. TENECTEPLASE OR PLACEBO (TENECTEPLASE)PWDR + SOLVGENT, INJECTION SOLN, [Suspect]
     Indication: CARDIAC ARREST
     Dates: start: 20051021, end: 20051021

REACTIONS (2)
  - CARDIAC ARREST [None]
  - PULMONARY EMBOLISM [None]
